FAERS Safety Report 4444970-4 (Version None)
Quarter: 2004Q3

REPORT INFORMATION
  Report Type: 
  Country: None (occurrence: None)
  Receive Date: 20040903
  Receipt Date: 20040823
  Transmission Date: 20050211
  Serious: Yes (Other)
  Sender: FDA-Public Use
  Company Number: 2004229667CA

PATIENT
  Age: 18 Year
  Sex: Female

DRUGS (1)
  1. DEPO-PROVERA [Suspect]
     Dosage: 1ST INJECTION, INTRAMUSCULAR
     Route: 030
     Dates: start: 20040816, end: 20040816

REACTIONS (3)
  - PRURITUS [None]
  - RASH GENERALISED [None]
  - RASH MACULAR [None]
